FAERS Safety Report 14814032 (Version 1)
Quarter: 2018Q2

REPORT INFORMATION
  Report Type: Spontaneous
  Country: FR (occurrence: FR)
  Receive Date: 20180426
  Receipt Date: 20180426
  Transmission Date: 20180711
  Serious: Yes (Other)
  Sender: FDA-Public Use
  Company Number: FR-MERCK KGAA-2046595

PATIENT
  Age: 34 Year
  Sex: Female

DRUGS (1)
  1. NOVOTHYROX [Suspect]
     Active Substance: LEVOTHYROXINE SODIUM
     Indication: POST PROCEDURAL HYPOTHYROIDISM

REACTIONS (25)
  - Insomnia [None]
  - Irritability [None]
  - Loss of personal independence in daily activities [None]
  - Fatigue [None]
  - Loss of consciousness [Not Recovered/Not Resolved]
  - Feeling abnormal [None]
  - Dizziness [None]
  - Abdominal pain upper [None]
  - Social avoidant behaviour [None]
  - Blood thyroid stimulating hormone decreased [None]
  - Vomiting [None]
  - Crying [None]
  - Fear [Not Recovered/Not Resolved]
  - Libido decreased [None]
  - Thyroxine free increased [None]
  - Nausea [None]
  - Emotional distress [None]
  - Nervousness [None]
  - Tachycardia [Not Recovered/Not Resolved]
  - Muscle spasms [None]
  - Burning sensation [None]
  - Arthralgia [None]
  - Myalgia [None]
  - Hyperhidrosis [None]
  - Nightmare [None]

NARRATIVE: CASE EVENT DATE: 201704
